FAERS Safety Report 8810727 (Version 1)
Quarter: 2012Q4

REPORT INFORMATION
  Report Type: 
  Country: US (occurrence: US)
  Receive Date: 20120927
  Receipt Date: 20120927
  Transmission Date: 20130627
  Serious: No
  Sender: FDA-Public Use
  Company Number: US-PFIZER INC-2012233866

PATIENT
  Age: 75 Year
  Sex: Male

DRUGS (2)
  1. SUTENT [Suspect]
     Indication: RENAL CANCER
     Dosage: 50 mg, UNK
     Dates: start: 20120911
  2. REVLIMID [Suspect]
     Dosage: UNK

REACTIONS (2)
  - Blood pressure decreased [Unknown]
  - Epistaxis [Unknown]
